FAERS Safety Report 4616251-7 (Version None)
Quarter: 2005Q1

REPORT INFORMATION
  Report Type: 
  Country: None (occurrence: None)
  Receive Date: 20050321
  Receipt Date: 20050307
  Transmission Date: 20050727
  Serious: Yes (Life-Threatening, Hospitalization)
  Sender: FDA-Public Use
  Company Number: SUS1-2005-00138

PATIENT
  Age: 10 Year
  Sex: Male
  Weight: 15.9 kg

DRUGS (1)
  1. ADDERALL 10 [Suspect]
     Indication: ATTENTION DEFICIT/HYPERACTIVITY DISORDER
     Dosage: 37-20 MG TABLETS, ORAL
     Route: 048
     Dates: end: 20050219

REACTIONS (17)
  - ABDOMINAL PAIN [None]
  - AGITATION [None]
  - CHEST PAIN [None]
  - CONFUSIONAL STATE [None]
  - DISORIENTATION [None]
  - FEAR [None]
  - HALLUCINATION [None]
  - HEART RATE INCREASED [None]
  - HEART RATE IRREGULAR [None]
  - INCOHERENT [None]
  - INSOMNIA [None]
  - INTENTIONAL MISUSE [None]
  - MYDRIASIS [None]
  - NAUSEA [None]
  - PSYCHOTIC DISORDER [None]
  - PUPILLARY REFLEX IMPAIRED [None]
  - SUICIDE ATTEMPT [None]
